FAERS Safety Report 12852946 (Version 1)
Quarter: 2016Q4

REPORT INFORMATION
  Report Type: Spontaneous
  Country: US (occurrence: US)
  Receive Date: 20161017
  Receipt Date: 20161017
  Transmission Date: 20170207
  Serious: No
  Sender: FDA-Public Use
  Company Number: US-JAZZ-2016-US-013937

PATIENT
  Sex: Female

DRUGS (34)
  1. OMEGA 3 [Concomitant]
     Active Substance: OMEGA-3 FATTY ACIDS
  2. AMBIEN [Concomitant]
     Active Substance: ZOLPIDEM TARTRATE
  3. ENBREL [Concomitant]
     Active Substance: ETANERCEPT
  4. IMITREX [Concomitant]
     Active Substance: SUMATRIPTAN SUCCINATE
  5. SILENOR [Concomitant]
     Active Substance: DOXEPIN HYDROCHLORIDE
  6. MAGNESIUM OXIDE. [Concomitant]
     Active Substance: MAGNESIUM OXIDE
  7. CELEBREX [Concomitant]
     Active Substance: CELECOXIB
  8. HUMIRA [Concomitant]
     Active Substance: ADALIMUMAB
  9. NEURONTIN [Concomitant]
     Active Substance: GABAPENTIN
  10. PROVIGIL [Concomitant]
     Active Substance: MODAFINIL
  11. XYREM [Suspect]
     Active Substance: SODIUM OXYBATE
     Indication: FIBROMYALGIA
     Dosage: 2.5 G, BID
     Route: 048
     Dates: start: 200707, end: 200708
  12. XYREM [Suspect]
     Active Substance: SODIUM OXYBATE
     Dosage: 5 G, BID
     Route: 048
     Dates: start: 201210, end: 2014
  13. ENDOCET [Concomitant]
     Active Substance: ACETAMINOPHEN\OXYCODONE HYDROCHLORIDE
  14. ULTRAM [Concomitant]
     Active Substance: TRAMADOL HYDROCHLORIDE
  15. XYREM [Suspect]
     Active Substance: SODIUM OXYBATE
     Dosage: 4.5 G, TID
     Route: 048
     Dates: start: 201402, end: 201403
  16. XYREM [Suspect]
     Active Substance: SODIUM OXYBATE
     Dosage: 4.5 G, BID
     Route: 048
     Dates: start: 201403, end: 2014
  17. DIAZEPAM. [Concomitant]
     Active Substance: DIAZEPAM
  18. XYREM [Suspect]
     Active Substance: SODIUM OXYBATE
     Dosage: 4.5 G, BID
     Route: 048
     Dates: start: 201007, end: 201210
  19. MULTIPLE VITAMINS [Concomitant]
     Active Substance: VITAMINS
  20. CLIMARA PRO [Concomitant]
     Active Substance: ESTRADIOL\LEVONORGESTREL
  21. ORACEA [Concomitant]
     Active Substance: DOXYCYCLINE
  22. WELLBUTRIN [Concomitant]
     Active Substance: BUPROPION HYDROCHLORIDE
  23. AMITRIPTYLINE [Concomitant]
     Active Substance: AMITRIPTYLINE
  24. PERCOCET [Concomitant]
     Active Substance: ACETAMINOPHEN\OXYCODONE HYDROCHLORIDE
  25. XYREM [Suspect]
     Active Substance: SODIUM OXYBATE
     Dosage: 4.5 G, BID
     Route: 048
     Dates: start: 200708
  26. OTEZLA [Concomitant]
     Active Substance: APREMILAST
  27. BIOTIN [Concomitant]
     Active Substance: BIOTIN
  28. SAVELLA [Concomitant]
     Active Substance: MILNACIPRAN HYDROCHLORIDE
  29. SIMPONI [Concomitant]
     Active Substance: GOLIMUMAB
  30. XYREM [Suspect]
     Active Substance: SODIUM OXYBATE
     Dosage: 4.5 G, BID
     Route: 048
     Dates: start: 201607
  31. NADOLOL. [Concomitant]
     Active Substance: NADOLOL
  32. SONATA [Concomitant]
     Active Substance: ZALEPLON
  33. SUMATRIPTAN. [Concomitant]
     Active Substance: SUMATRIPTAN
  34. VALACYCLOVIR HCL [Concomitant]
     Active Substance: VALACYCLOVIR HYDROCHLORIDE

REACTIONS (1)
  - Malaise [Not Recovered/Not Resolved]
